FAERS Safety Report 18599414 (Version 1)
Quarter: 2020Q4

REPORT INFORMATION
  Report Type: Spontaneous
  Country: US (occurrence: US)
  Receive Date: 20201209
  Receipt Date: 20201209
  Transmission Date: 20210114
  Serious: No
  Sender: FDA-Public Use
  Company Number: None

PATIENT
  Age: 83 Year
  Sex: Female
  Weight: 62.1 kg

DRUGS (7)
  1. ANASTROZOLE. [Concomitant]
     Active Substance: ANASTROZOLE
  2. FLUOXETINE [Concomitant]
     Active Substance: FLUOXETINE HYDROCHLORIDE
  3. MIRTAZAPINE. [Concomitant]
     Active Substance: MIRTAZAPINE
  4. PANTOPROZOLE [Concomitant]
     Active Substance: PANTOPRAZOLE SODIUM
  5. SIMVASTATIN. [Concomitant]
     Active Substance: SIMVASTATIN
  6. KANJINTI [Suspect]
     Active Substance: TRASTUZUMAB-ANNS
     Indication: HER2 POSITIVE BREAST CANCER
     Dosage: ?          QUANTITY:481MG IN NS 250ML;OTHER FREQUENCY:Q21 DAYS;OTHER ROUTE:IV INFUSION?
     Route: 042
     Dates: start: 20200912, end: 20200912
  7. ASPIRIN. [Concomitant]
     Active Substance: ASPIRIN

REACTIONS (5)
  - Nausea [None]
  - Oxygen saturation decreased [None]
  - Infusion related reaction [None]
  - Chills [None]
  - Blood pressure increased [None]

NARRATIVE: CASE EVENT DATE: 20200912
